FAERS Safety Report 8471277-0 (Version None)
Quarter: 2012Q2

REPORT INFORMATION
  Report Type: 
  Country: None (occurrence: None)
  Receive Date: 20120627
  Receipt Date: 20120619
  Transmission Date: 20120825
  Serious: Yes (Hospitalization)
  Sender: FDA-Public Use
  Company Number: US-BAYER-2012-017442

PATIENT
  Age: 45 Year
  Sex: Female
  Weight: 82.54 kg

DRUGS (11)
  1. YASMIN [Suspect]
     Dosage: UNK
     Dates: start: 20060113, end: 20070210
  2. PAXIL [Concomitant]
     Dosage: UNK
  3. METFORMIN HCL [Concomitant]
     Dosage: 250 MG, HS
  4. ZOCOR [Concomitant]
     Dosage: 40 MG, HS
  5. WELLBUTRIN SR [Concomitant]
     Dosage: 200 MG, BID
  6. VISTARIL [Concomitant]
     Dosage: 200 MG, BID
  7. YASMIN [Suspect]
     Indication: ACNE
     Dosage: UNK
     Dates: start: 20050721, end: 20051206
  8. TRAZODONE HCL [Concomitant]
     Dosage: 150 MG, HS
  9. IBUPROFEN [Concomitant]
     Dosage: 800 MG, PRN
  10. GEODON [Concomitant]
     Dosage: 40 MG, BID
  11. BUSPAR [Concomitant]
     Dosage: 15 MG, BID

REACTIONS (4)
  - PAIN [None]
  - ANXIETY [None]
  - PULMONARY EMBOLISM [None]
  - DEPRESSION [None]
